FAERS Safety Report 9341199 (Version 1)
Quarter: 2013Q2

REPORT INFORMATION
  Report Type: Report from Study
  Country: US (occurrence: US)
  Receive Date: 20130611
  Receipt Date: 20130611
  Transmission Date: 20140414
  Serious: Yes (Hospitalization)
  Sender: FDA-Public Use
  Company Number: US-ROCHE-1232573

PATIENT
  Age: 66 Year
  Sex: Male

DRUGS (2)
  1. XELODA [Suspect]
     Indication: COLON CANCER STAGE IV
     Route: 048
     Dates: start: 20130401
  2. OXALIPLATIN [Concomitant]
     Route: 042

REACTIONS (3)
  - Gastrointestinal disorder [Recovered/Resolved]
  - Local swelling [Not Recovered/Not Resolved]
  - Decreased appetite [Not Recovered/Not Resolved]
